FAERS Safety Report 14684179 (Version 1)
Quarter: 2018Q1

REPORT INFORMATION
  Report Type: Spontaneous
  Country: US (occurrence: US)
  Receive Date: 20180327
  Receipt Date: 20180327
  Transmission Date: 20180509
  Serious: Yes (Other)
  Sender: FDA-Public Use
  Company Number: US-INFO-000545

PATIENT
  Sex: Female

DRUGS (1)
  1. LEVOFLOXACIN INJECTION IN 5% DEXTROSE [Suspect]
     Active Substance: LEVOFLOXACIN
     Route: 042

REACTIONS (2)
  - Occupational exposure to product [Unknown]
  - Pruritus [Unknown]
